FAERS Safety Report 19975349 (Version 2)
Quarter: 2022Q2

REPORT INFORMATION
  Report Type: Spontaneous
  Country: ES (occurrence: ES)
  Receive Date: 20211020
  Receipt Date: 20220520
  Transmission Date: 20220721
  Serious: Yes (Hospitalization)
  Sender: FDA-Public Use
  Company Number: ES-STADA-233945

PATIENT
  Age: 10 Year
  Sex: Male

DRUGS (10)
  1. SIROLIMUS [Interacting]
     Active Substance: SIROLIMUS
     Indication: Immunosuppressant drug therapy
     Dosage: 1.4 MG, 1X/DAY
     Route: 065
  2. SIROLIMUS [Interacting]
     Active Substance: SIROLIMUS
     Dosage: 0.8 MG, 1X/DAY
     Route: 065
  3. SIROLIMUS [Interacting]
     Active Substance: SIROLIMUS
     Dosage: 0.6 MG, 1X/DAY
     Route: 065
  4. SIROLIMUS [Interacting]
     Active Substance: SIROLIMUS
     Dosage: 0.2 MG, 1X/DAY
     Route: 065
  5. VORICONAZOLE [Interacting]
     Active Substance: VORICONAZOLE
     Dosage: 9 MG/KG, ALTERNATE DAY
     Route: 048
  6. TACROLIMUS [Interacting]
     Active Substance: TACROLIMUS
     Indication: Immunosuppressant drug therapy
     Dosage: 1 MG, 2X/DAY
     Route: 065
  7. TACROLIMUS [Interacting]
     Active Substance: TACROLIMUS
     Dosage: 0.8 MG, 2X/DAY
     Route: 065
  8. TACROLIMUS [Interacting]
     Active Substance: TACROLIMUS
     Dosage: 0.6 MG, 2X/DAY
     Route: 065
  9. TACROLIMUS [Interacting]
     Active Substance: TACROLIMUS
     Dosage: 0.4 MG, 2X/DAY
     Route: 065
  10. SULFAMETHOXAZOLE\TRIMETHOPRIM [Concomitant]
     Active Substance: SULFAMETHOXAZOLE\TRIMETHOPRIM
     Indication: Prophylaxis
     Route: 065

REACTIONS (5)
  - Cryptococcosis [Recovered/Resolved]
  - Gastrointestinal disorder [Recovering/Resolving]
  - Blood creatinine increased [Recovered/Resolved]
  - Visual impairment [Recovering/Resolving]
  - Potentiating drug interaction [Recovering/Resolving]
